FAERS Safety Report 11135874 (Version 1)
Quarter: 2015Q2

REPORT INFORMATION
  Report Type: Spontaneous
  Country: KR (occurrence: KR)
  Receive Date: 20150526
  Receipt Date: 20150526
  Transmission Date: 20150821
  Serious: Yes (Hospitalization, Other)
  Sender: FDA-Public Use
  Company Number: KR-ASTRAZENECA-2015SE33673

PATIENT
  Age: 77 Year
  Sex: Male
  Weight: 72.5 kg

DRUGS (10)
  1. FORXIGA [Suspect]
     Active Substance: DAPAGLIFLOZIN
     Indication: DIABETES MELLITUS INADEQUATE CONTROL
     Route: 048
     Dates: start: 20141205, end: 20150313
  2. VALSARTAN. [Suspect]
     Active Substance: VALSARTAN
     Indication: HYPERTENSION
     Route: 048
     Dates: start: 20130627, end: 20150313
  3. VALSARTAN. [Suspect]
     Active Substance: VALSARTAN
     Indication: PROTEINURIA
     Route: 048
     Dates: start: 20130627, end: 20150313
  4. CLOPIDOGREL [Concomitant]
     Active Substance: CLOPIDOGREL BISULFATE
     Indication: ATRIAL FIBRILLATION
     Route: 048
     Dates: start: 20101215, end: 20150313
  5. ASPART [Concomitant]
     Indication: DIABETES MELLITUS
     Dosage: 5 TWICE DAILY
     Route: 058
     Dates: start: 20130627
  6. THIOCTIC ACID [Concomitant]
     Active Substance: .ALPHA.-LIPOIC ACID, (+/-)-
     Indication: DIABETIC NEUROPATHY
     Route: 048
     Dates: start: 20050715
  7. FOLIC ACID. [Concomitant]
     Active Substance: FOLIC ACID
     Indication: DEMENTIA ALZHEIMER^S TYPE
     Route: 048
     Dates: start: 20131007
  8. METFORMIN [Concomitant]
     Active Substance: METFORMIN HYDROCHLORIDE
     Indication: DIABETES MELLITUS
     Route: 048
     Dates: start: 20130627, end: 20150313
  9. GLARGINE [Concomitant]
     Indication: DIABETES MELLITUS
     Dosage: 10 DAILY
     Route: 058
     Dates: start: 20130627
  10. DONEPEZIL [Concomitant]
     Active Substance: DONEPEZIL
     Indication: DEMENTIA ALZHEIMER^S TYPE
     Route: 048
     Dates: start: 20131007

REACTIONS (4)
  - Weight decreased [Unknown]
  - Acute kidney injury [Recovered/Resolved]
  - Osteomyelitis [Unknown]
  - Dehydration [Unknown]

NARRATIVE: CASE EVENT DATE: 201412
